FAERS Safety Report 6685251-8 (Version None)
Quarter: 2010Q2

REPORT INFORMATION
  Report Type: 
  Country: None (occurrence: None)
  Receive Date: 20100416
  Receipt Date: 20100407
  Transmission Date: 20101027
  Serious: Yes (Other)
  Sender: FDA-Public Use
  Company Number: CH-GILEAD-2010-0028355

PATIENT
  Age: 39 Year
  Sex: Male

DRUGS (6)
  1. TRUVADA [Suspect]
     Indication: HIV INFECTION
     Route: 048
     Dates: start: 20091209, end: 20091229
  2. TRUVADA [Suspect]
     Dates: start: 20070101
  3. REYATAZ [Concomitant]
     Route: 048
     Dates: start: 20091209, end: 20091229
  4. REYATAZ [Concomitant]
     Dates: start: 20070101
  5. NORVIR [Concomitant]
     Route: 048
     Dates: start: 20091209, end: 20091229
  6. NORVIR [Concomitant]
     Dates: start: 20070101

REACTIONS (2)
  - JAUNDICE [None]
  - LIVER INJURY [None]
